FAERS Safety Report 14141475 (Version 1)
Quarter: 2017Q4

REPORT INFORMATION
  Report Type: Spontaneous
  Country: US (occurrence: US)
  Receive Date: 20171028
  Receipt Date: 20171028
  Transmission Date: 20180321
  Serious: Yes (Hospitalization)
  Sender: FDA-Public Use
  Company Number: None

PATIENT
  Age: 48 Year
  Sex: Female
  Weight: 61 kg

DRUGS (1)
  1. PAZOPANIB [Suspect]
     Active Substance: PAZOPANIB
     Indication: METASTATIC RENAL CELL CARCINOMA
     Route: 048
     Dates: start: 20170927, end: 20171016

REACTIONS (4)
  - Hypertensive crisis [None]
  - Posterior reversible encephalopathy syndrome [None]
  - Seizure [None]
  - Mental status changes [None]

NARRATIVE: CASE EVENT DATE: 20171016
